FAERS Safety Report 5814805-3 (Version None)
Quarter: 2008Q3

REPORT INFORMATION
  Report Type: 
  Country: None (occurrence: None)
  Receive Date: 20080715
  Receipt Date: 20080702
  Transmission Date: 20090109
  Serious: Yes (Other)
  Sender: FDA-Public Use
  Company Number: 2008017883

PATIENT

DRUGS (9)
  1. CETIRIZINE HCL [Suspect]
     Indication: HYPERSENSITIVITY
     Dosage: PLACENTAL
  2. CLARITHROMYCIN [Concomitant]
  3. ROXITHROMYCIN (ROXITHROMYCIN) [Concomitant]
  4. ETILEFRINE (ETILEFRINE) [Concomitant]
  5. DIHYDROERGOTAMINE MESYLATE [Concomitant]
  6. XYLOMETAZOLINE (XYLOMETAZOLINE) [Concomitant]
  7. MAGALDRATE (MAGALDRATE) [Concomitant]
  8. BUTYLSCOPOLAMINE (HYOSCINE BUTYLBROMIDE) [Concomitant]
  9. ACETAMINOPHEN [Concomitant]

REACTIONS (7)
  - ABDOMINAL PAIN [None]
  - ATRIAL SEPTAL DEFECT [None]
  - CONGENITAL ANOMALY [None]
  - DRUG EXPOSURE DURING PREGNANCY [None]
  - HYPOKINESIA [None]
  - HYPOTENSION [None]
  - MATERNAL DRUGS AFFECTING FOETUS [None]
